FAERS Safety Report 21420807 (Version 1)
Quarter: 2022Q4

REPORT INFORMATION
  Report Type: Report from Study
  Country: US (occurrence: US)
  Receive Date: 20221007
  Receipt Date: 20221007
  Transmission Date: 20230113
  Serious: Yes (Other)
  Sender: FDA-Public Use
  Company Number: US-ABBVIE-4141586

PATIENT
  Sex: Female

DRUGS (2)
  1. SKYRIZI [Suspect]
     Active Substance: RISANKIZUMAB-RZAA
     Indication: Psoriasis
     Dosage: 150MG/ML
     Route: 058
  2. Covid Vaccine [Concomitant]
     Indication: COVID-19 immunisation
     Dosage: FREQUENCY: 1 IN 1 ONCE
     Route: 030

REACTIONS (1)
  - Joint arthroplasty [Unknown]
